FAERS Safety Report 7525253-2 (Version None)
Quarter: 2011Q2

REPORT INFORMATION
  Report Type: 
  Country: None (occurrence: None)
  Receive Date: 20110606
  Receipt Date: 20110523
  Transmission Date: 20111010
  Serious: Yes (Other)
  Sender: FDA-Public Use
  Company Number: US-JNJFOC-20110511522

PATIENT
  Age: 42 Year
  Sex: Male
  Weight: 105.24 kg

DRUGS (4)
  1. DITROPAN [Suspect]
     Indication: MICTURITION DISORDER
     Dosage: BY TAKING HALF A PILL OF 20 MG
     Route: 065
  2. ZOLOFT [Suspect]
     Indication: WITHDRAWAL SYNDROME
     Route: 065
     Dates: start: 19990901, end: 19990901
  3. XANAX [Suspect]
     Indication: PANIC ATTACK
     Dosage: TAKING ONE AND A HALF TABLET OF 25 MG
     Route: 048
     Dates: start: 19920101, end: 19990801
  4. EFFEXOR XR [Suspect]
     Indication: PANIC ATTACK
     Route: 048
     Dates: start: 20000101

REACTIONS (3)
  - WRONG TECHNIQUE IN DRUG USAGE PROCESS [None]
  - FREQUENT BOWEL MOVEMENTS [None]
  - POLLAKIURIA [None]
